FAERS Safety Report 11492194 (Version 1)
Quarter: 2015Q3

REPORT INFORMATION
  Report Type: Spontaneous
  Country: US (occurrence: US)
  Receive Date: 20150910
  Receipt Date: 20150910
  Transmission Date: 20151125
  Serious: No
  Sender: FDA-Public Use
  Company Number: ALCN2015US005661

PATIENT
  Age: 78 Year
  Sex: Female

DRUGS (1)
  1. GENTEAL NIGHT-TIME PM [Suspect]
     Active Substance: MINERAL OIL\PETROLATUM
     Indication: DRY EYE
     Dosage: 1 GTT, QD
     Route: 047
     Dates: start: 20150902, end: 20150908

REACTIONS (1)
  - Eye pruritus [Recovered/Resolved]

NARRATIVE: CASE EVENT DATE: 20150902
